FAERS Safety Report 7516812-1 (Version None)
Quarter: 2011Q2

REPORT INFORMATION
  Report Type: 
  Country: None (occurrence: None)
  Receive Date: 20110601
  Receipt Date: 20110523
  Transmission Date: 20111010
  Serious: Yes (Hospitalization)
  Sender: FDA-Public Use
  Company Number: JP-MERCK-1105USA03976

PATIENT
  Age: 88 Year
  Sex: Female

DRUGS (3)
  1. ARTANE [Concomitant]
     Indication: PARKINSON'S DISEASE
     Route: 048
  2. JANUVIA [Suspect]
     Indication: DIABETES MELLITUS
     Route: 048
     Dates: start: 20110301, end: 20110501
  3. SYMMETREL [Concomitant]
     Indication: PARKINSON'S DISEASE
     Route: 048

REACTIONS (2)
  - WEIGHT DECREASED [None]
  - DECREASED APPETITE [None]
